FAERS Safety Report 17174431 (Version 1)
Quarter: 2019Q4

REPORT INFORMATION
  Report Type: Spontaneous
  Country: US (occurrence: US)
  Receive Date: 20191126
  Receipt Date: 20191126
  Transmission Date: 20200122
  Serious: Yes (Hospitalization)
  Sender: FDA-Public Use
  Company Number: None

PATIENT
  Sex: Female

DRUGS (14)
  1. FEROSUL [Concomitant]
     Active Substance: FERROUS SULFATE
  2. MIRTAZAPINE. [Concomitant]
     Active Substance: MIRTAZAPINE
  3. DONEPEZIL. [Concomitant]
     Active Substance: DONEPEZIL
  4. MUPIROCIN. [Concomitant]
     Active Substance: MUPIROCIN
  5. PANTOPRAZOLE [Concomitant]
     Active Substance: PANTOPRAZOLE
  6. VANCOMYCIN [Concomitant]
     Active Substance: VANCOMYCIN
  7. CYPROHEPTAD [Concomitant]
  8. ELIQUIS [Concomitant]
     Active Substance: APIXABAN
  9. ESBRIET [Suspect]
     Active Substance: PIRFENIDONE
     Indication: IDIOPATHIC PULMONARY FIBROSIS
     Route: 048
     Dates: start: 20171216
  10. CARVEDILOL. [Concomitant]
     Active Substance: CARVEDILOL
  11. LINSINOPRIL [Concomitant]
     Active Substance: LISINOPRIL
  12. NITROGLYCERN [Concomitant]
  13. DICYCLOMINE [Concomitant]
     Active Substance: DICYCLOMINE HYDROCHLORIDE
  14. FUROSEMIDE. [Concomitant]
     Active Substance: FUROSEMIDE

REACTIONS (2)
  - Hospitalisation [None]
  - Unevaluable event [None]
